FAERS Safety Report 8860399 (Version 1)
Quarter: 2012Q4

REPORT INFORMATION
  Report Type: 
  Country: US (occurrence: US)
  Receive Date: 20121025
  Receipt Date: 20121025
  Transmission Date: 20130627
  Serious: Yes (Hospitalization, Other)
  Sender: FDA-Public Use
  Company Number: US-JNJFOC-20121008882

PATIENT
  Sex: Male
  Weight: 145.15 kg

DRUGS (1)
  1. REMICADE [Suspect]
     Indication: CROHN^S DISEASE
     Route: 042
     Dates: start: 1997, end: 201205

REACTIONS (3)
  - Crohn^s disease [Not Recovered/Not Resolved]
  - Mass [Not Recovered/Not Resolved]
  - Therapy cessation [Not Recovered/Not Resolved]
